FAERS Safety Report 6235282-7 (Version None)
Quarter: 2009Q2

REPORT INFORMATION
  Report Type: 
  Country: None (occurrence: None)
  Receive Date: 20090618
  Receipt Date: 20090611
  Transmission Date: 20091009
  Serious: Yes (Other)
  Sender: FDA-Public Use
  Company Number: US-CELGENEUS-163-21880-09050969

PATIENT
  Sex: Female

DRUGS (2)
  1. REVLIMID [Suspect]
     Route: 048
     Dates: start: 20071101
  2. ASPIRIN [Concomitant]
     Indication: DRUG USE FOR UNKNOWN INDICATION
     Route: 065

REACTIONS (2)
  - CONTUSION [None]
  - HAEMORRHAGE [None]
